FAERS Safety Report 18095913 (Version 1)
Quarter: 2020Q3

REPORT INFORMATION
  Report Type: Report from Study
  Country: CA (occurrence: CA)
  Receive Date: 20200731
  Receipt Date: 20200731
  Transmission Date: 20201103
  Serious: Yes (Hospitalization, Other)
  Sender: FDA-Public Use
  Company Number: CA-PFIZER INC-2020289415

PATIENT
  Age: 67 Year
  Sex: Female
  Weight: 108 kg

DRUGS (8)
  1. HYDROCORTISONE. [Suspect]
     Active Substance: HYDROCORTISONE
     Dosage: UNK
     Route: 065
  2. ALENDRONATE SODIUM. [Concomitant]
     Active Substance: ALENDRONATE SODIUM
     Route: 065
  3. SPIRONOLACTONE. [Concomitant]
     Active Substance: SPIRONOLACTONE
  4. PREDNISONE. [Suspect]
     Active Substance: PREDNISONE
     Dosage: UNK
     Route: 065
  5. ATENOLOL. [Concomitant]
     Active Substance: ATENOLOL
  6. COVERSYL PLUS HD [Suspect]
     Active Substance: INDAPAMIDE\PERINDOPRIL ERBUMINE
     Dosage: UNK
     Route: 065
  7. RITUXIMAB. [Suspect]
     Active Substance: RITUXIMAB
     Indication: RHEUMATOID ARTHRITIS
     Dosage: 1000 MG, 1 EVERY 15 DAYS
     Route: 042
  8. ORENCIA [Concomitant]
     Active Substance: ABATACEPT
     Route: 065

REACTIONS (9)
  - Skin laceration [Unknown]
  - Fall [Unknown]
  - Joint swelling [Unknown]
  - Renal impairment [Unknown]
  - Pain in extremity [Unknown]
  - Weight decreased [Unknown]
  - Peripheral swelling [Unknown]
  - Drug intolerance [Unknown]
  - Muscular weakness [Unknown]
